FAERS Safety Report 18272977 (Version 1)
Quarter: 2020Q3

REPORT INFORMATION
  Report Type: Spontaneous
  Country: US (occurrence: US)
  Receive Date: 20200525
  Receipt Date: 20200525
  Transmission Date: 20201103
  Serious: No
  Sender: FDA-Public Use
  Company Number: None

PATIENT
  Sex: Male

DRUGS (4)
  1. LOPINAVIR?RITONAVIR [Suspect]
     Active Substance: LOPINAVIR\RITONAVIR
     Dates: start: 2020
  2. ECULIZUMAB [Suspect]
     Active Substance: ECULIZUMAB
  3. HYDROXYCHLOROQUINE [Suspect]
     Active Substance: HYDROXYCHLOROQUINE
  4. CEFTRIAXONE. [Suspect]
     Active Substance: CEFTRIAXONE

REACTIONS (5)
  - Anaemia [None]
  - Neutrophilia [None]
  - Leukocytosis [None]
  - Off label use [None]
  - Cytopenia [None]
